FAERS Safety Report 6648166-7 (Version None)
Quarter: 2010Q1

REPORT INFORMATION
  Report Type: 
  Country: None (occurrence: None)
  Receive Date: 20100319
  Receipt Date: 20100308
  Transmission Date: 20100710
  Serious: Yes (Hospitalization)
  Sender: FDA-Public Use
  Company Number: 232452J10USA

PATIENT
  Age: 41 Year
  Sex: Female

DRUGS (11)
  1. REBIF [Suspect]
     Indication: MULTIPLE SCLEROSIS
     Dosage: 44 MCG, 3 IN 1 WEEKS, SUBCUTANEOUS
     Route: 058
     Dates: start: 20081218
  2. NEURONTIN [Concomitant]
  3. MYSOLINE [Concomitant]
  4. PRILOSEC [Concomitant]
  5. PERCOCET [Concomitant]
  6. METHADONE HCL [Concomitant]
  7. POTASSIUM (POTASSIUM) [Concomitant]
  8. ZOLOFT [Concomitant]
  9. PAMELOR [Concomitant]
  10. SEROQUEL [Concomitant]
  11. PHENERGAN (PROMETHAZINE) [Concomitant]

REACTIONS (4)
  - CONDITION AGGRAVATED [None]
  - CONVULSION [None]
  - DRUG INTERACTION [None]
  - MULTIPLE SCLEROSIS [None]
